FAERS Safety Report 8433410-6 (Version None)
Quarter: 2012Q2

REPORT INFORMATION
  Report Type: 
  Country: None (occurrence: None)
  Receive Date: 20120613
  Receipt Date: 20120607
  Transmission Date: 20120825
  Serious: Yes (Hospitalization)
  Sender: FDA-Public Use
  Company Number: FR-MERCK-1206FRA00044

PATIENT
  Age: 80 Year
  Sex: Female

DRUGS (8)
  1. PRAZEPAM [Concomitant]
     Route: 065
  2. PIRIBEDIL [Concomitant]
     Route: 065
  3. POLYETHYLENE GLYCOL 4000 [Concomitant]
     Route: 065
  4. NEBIVOLOL HYDROCHLORIDE [Concomitant]
     Route: 065
  5. TRIMEBUTINE MALEATE [Concomitant]
     Route: 065
  6. RABEPRAZOLE SODIUM [Suspect]
     Indication: ULCER
     Route: 048
  7. SINEMET [Suspect]
     Indication: PARKINSON'S DISEASE
     Route: 048
  8. ACETAMINOPHEN AND CODEINE PHOSPHATE [Suspect]
     Indication: PAIN
     Route: 048

REACTIONS (1)
  - NEUTROPENIA [None]
